FAERS Safety Report 8114724-6 (Version None)
Quarter: 2012Q1

REPORT INFORMATION
  Report Type: 
  Country: None (occurrence: None)
  Receive Date: 20120202
  Receipt Date: 20120202
  Transmission Date: 20120608
  Serious: Yes (Other)
  Sender: FDA-Public Use
  Company Number: None

PATIENT
  Age: 79 Year
  Sex: Female
  Weight: 67.1324 kg

DRUGS (3)
  1. LEVOFLOXACIN [Suspect]
     Indication: SYSTEMIC LUPUS ERYTHEMATOSUS
     Dosage: 11/14/11
  2. LEVOFLOXACIN [Suspect]
     Indication: RHEUMATOID ARTHRITIS
     Dosage: 11/14/11
  3. LEVOFLOXACIN [Suspect]
     Indication: INFECTION
     Dosage: 11/14/11

REACTIONS (1)
  - PAIN [None]
